FAERS Safety Report 25558342 (Version 1)
Quarter: 2025Q3

REPORT INFORMATION
  Report Type: Spontaneous
  Country: IL (occurrence: IL)
  Receive Date: 20250715
  Receipt Date: 20250715
  Transmission Date: 20251021
  Serious: Yes (Other)
  Sender: TEVA
  Company Number: IL-TEVA-VS-3351548

PATIENT
  Age: 45 Year
  Sex: Male

DRUGS (2)
  1. CARBOPLATIN [Suspect]
     Active Substance: CARBOPLATIN
     Indication: Metastases to lymph nodes
     Dosage: 60 GRAY IN 30 FRACTIONS, WITH WEEKLY CHEMOTHERAPY (CARBOPLATIN + TAXOL)
     Route: 065
     Dates: start: 2023
  2. TAXOL [Suspect]
     Active Substance: PACLITAXEL
     Indication: Lung adenocarcinoma
     Dosage: 60 GRAY IN 30 FRACTIONS, WITH WEEKLY CHEMOTHERAPY (CARBOPLATIN + TAXOL)
     Route: 065
     Dates: start: 2023

REACTIONS (1)
  - Metastases to central nervous system [Recovered/Resolved]

NARRATIVE: CASE EVENT DATE: 20230101
